FAERS Safety Report 12795663 (Version 1)
Quarter: 2016Q3

REPORT INFORMATION
  Report Type: Spontaneous
  Country: IN (occurrence: IN)
  Receive Date: 20160929
  Receipt Date: 20160929
  Transmission Date: 20161109
  Serious: Yes (Other)
  Sender: FDA-Public Use
  Company Number: IN-ABBVIE-16P-078-1741636-00

PATIENT
  Age: 10 Year
  Sex: Male

DRUGS (1)
  1. VALPARIN CHRONO [Suspect]
     Active Substance: VALPROIC ACID
     Indication: EPILEPSY
     Dosage: EXTENDED RELEASE
     Route: 048

REACTIONS (5)
  - Drug ineffective [Unknown]
  - Seizure [Unknown]
  - Pyrexia [Unknown]
  - Medication residue present [Unknown]
  - Vomiting [Unknown]
